FAERS Safety Report 4979412-3 (Version None)
Quarter: 2006Q2

REPORT INFORMATION
  Report Type: 
  Country: None (occurrence: None)
  Receive Date: 20060421
  Receipt Date: 20060413
  Transmission Date: 20061013
  Serious: Yes (Hospitalization)
  Sender: FDA-Public Use
  Company Number: US-MERCK-0604USA02527

PATIENT
  Age: 75 Year
  Sex: Female

DRUGS (11)
  1. ELAVIL [Suspect]
     Route: 048
  2. COGENTIN [Suspect]
     Route: 048
  3. THIOTHIXENE [Suspect]
     Route: 048
  4. DIVALPROEX SODIUM [Concomitant]
     Route: 048
  5. LITHIUM SULFATE [Suspect]
     Route: 048
  6. FLUTICASONE PROPIONATE AND SALMETEROL XINAFOATE [Concomitant]
     Route: 048
  7. SINGULAIR [Concomitant]
     Indication: ASTHMA
     Route: 048
  8. HYDROCHLOROTHIAZIDE [Concomitant]
     Indication: HYPERTENSION
     Route: 048
  9. LISINOPRIL [Concomitant]
     Indication: HYPERTENSION
     Route: 048
  10. LEVOTHYROXINE SODIUM [Concomitant]
     Indication: HYPOTHYROIDISM
     Route: 048
  11. TRAZODONE HYDROCHLORIDE [Concomitant]
     Route: 048

REACTIONS (3)
  - ANTICHOLINERGIC SYNDROME [None]
  - SCHIZOAFFECTIVE DISORDER [None]
  - TARDIVE DYSKINESIA [None]
